FAERS Safety Report 4793487-6 (Version None)
Quarter: 2005Q4

REPORT INFORMATION
  Report Type: 
  Country: None (occurrence: None)
  Receive Date: 20051011
  Receipt Date: 20050817
  Transmission Date: 20060501
  Serious: No
  Sender: FDA-Public Use
  Company Number: US-BRISTOL-MYERS SQUIBB COMPANY-13081617

PATIENT
  Age: 62 Year
  Sex: Female
  Weight: 143 kg

DRUGS (3)
  1. METFORMIN HCL XR TABS 500 MG [Suspect]
     Indication: DIABETES MELLITUS NON-INSULIN-DEPENDENT
     Route: 048
     Dates: start: 19970101
  2. AMARYL [Concomitant]
     Dosage: OD
  3. COZAAR [Concomitant]
     Dosage: OD

REACTIONS (2)
  - MUSCLE SPASMS [None]
  - WEIGHT INCREASED [None]
